FAERS Safety Report 8764522 (Version 1)
Quarter: 2012Q4

REPORT INFORMATION
  Report Type: 
  Country: JP (occurrence: JP)
  Receive Date: 20120831
  Receipt Date: 20120831
  Transmission Date: 20130627
  Serious: Yes (Death, Other)
  Sender: FDA-Public Use
  Company Number: JP-BAXTER-2012BAX015071

PATIENT
  Sex: Female

DRUGS (2)
  1. DIANEAL [Suspect]
     Indication: RENAL FAILURE CHRONIC
     Route: 033
     Dates: start: 20070529, end: 20120822
  2. DIANEAL [Suspect]
     Route: 033
     Dates: start: 20120529, end: 20120822

REACTIONS (5)
  - Renal failure [Fatal]
  - Respiratory failure [Fatal]
  - Hypophagia [Unknown]
  - Asthenia [Unknown]
  - General physical health deterioration [None]
